FAERS Safety Report 10207565 (Version 1)
Quarter: 2014Q2

REPORT INFORMATION
  Report Type: Spontaneous
  Country: US (occurrence: US)
  Receive Date: 20140530
  Receipt Date: 20140530
  Transmission Date: 20141212
  Serious: No
  Sender: FDA-Public Use
  Company Number: US-GLAXOSMITHKLINE-A1049858A

PATIENT
  Age: 52 Year
  Sex: Female

DRUGS (6)
  1. VENTOLIN [Suspect]
     Indication: ASTHMA
     Route: 055
  2. ELMIRON [Concomitant]
  3. BENADRYL [Concomitant]
  4. HYDROXYZINE [Concomitant]
  5. ASTELIN [Concomitant]
  6. FLONASE [Concomitant]

REACTIONS (2)
  - Bronchitis [Recovering/Resolving]
  - Chest discomfort [Unknown]
